FAERS Safety Report 8510894-6 (Version None)
Quarter: 2012Q3

REPORT INFORMATION
  Report Type: 
  Country: None (occurrence: None)
  Receive Date: 20120705
  Receipt Date: 20120618
  Transmission Date: 20120928
  Serious: Yes (Congenital Anomaly)
  Sender: FDA-Public Use
  Company Number: E2B_00000251

PATIENT
  Weight: 3.25 kg

DRUGS (3)
  1. CLONAZEPAM [Suspect]
     Indication: EPILEPSY
     Dosage: 0.5 MG, UNK, TRANSPLACENTAL
     Route: 064
     Dates: start: 20110414, end: 20120106
  2. LAMOTRIGINE [Suspect]
     Indication: EPILEPSY
     Dosage: 75 MG, UNK, TRANSPLACENTAL
     Route: 064
     Dates: start: 20110414, end: 20120106
  3. LEVOTHYROXINE SODIUM (THYROXIN) [Concomitant]

REACTIONS (5)
  - CAESAREAN SECTION [None]
  - ATRIAL SEPTAL DEFECT [None]
  - MATERNAL DRUGS AFFECTING FOETUS [None]
  - CEPHALO-PELVIC DISPROPORTION [None]
  - VENTRICULAR SEPTAL DEFECT [None]
